FAERS Safety Report 7795010 (Version 6)
Quarter: 2014Q1

REPORT INFORMATION
  Report Type: Spontaneous
  Country: US (occurrence: US)
  Receive Date: 20110201
  Receipt Date: 20140307
  Transmission Date: 20141002
  Serious: Yes (Other)
  Sender: FDA-Public Use
  Company Number: US-ASTRAZENECA-2011SE04118

PATIENT
  Age: 49 Year
  Sex: Female

DRUGS (35)
  1. NEXIUM [Suspect]
     Indication: ABDOMINAL PAIN UPPER
     Route: 048
  2. NEXIUM [Suspect]
     Indication: GASTRIC BYPASS
     Route: 048
  3. NEXIUM [Suspect]
     Indication: PAIN
     Route: 048
  4. MOTRIN [Concomitant]
  5. ADDERALL [Concomitant]
  6. CITALOPRAM HYDROBROMIDE [Concomitant]
     Indication: ANXIETY
  7. CITALOPRAM HYDROBROMIDE [Concomitant]
     Indication: DEPRESSION
  8. OXYCODONE HCL [Concomitant]
     Indication: BACK PAIN
     Dosage: 15 MG 1 TAB PRN TID
  9. DIAZEPAM [Concomitant]
     Indication: ANXIETY
     Dosage: 5 MG 1 TAB PRN TID
  10. DIAZEPAM [Concomitant]
     Indication: INSOMNIA
     Dosage: 5 MG 1 TAB PRN TID
  11. MONTELUKAST [Concomitant]
     Indication: HYPERSENSITIVITY
  12. MONTELUKAST [Concomitant]
     Indication: ASTHMA
  13. FUROSEMIDE(LASIX) [Concomitant]
     Indication: MICTURITION DISORDER
  14. MELOXICAM (MOBIC) [Concomitant]
  15. TAMSULOSIN [Concomitant]
     Dosage: 0.4 MG, 30 MINUTES AFTER BREAKFAST QAM
  16. FLUTICASONE PROPIONATE [Concomitant]
     Indication: HYPERSENSITIVITY
     Dosage: 50 MCG, 2 SPRAYS QAM
     Route: 045
  17. VAGIFEM ESTROGEN TABLETS [Concomitant]
     Indication: MENOPAUSAL SYMPTOMS
     Dosage: 1 TAB BIWK
     Route: 050
  18. FLINTSTONES COMPLETE CHEWABLE MULTIVITAMINS [Concomitant]
     Dosage: 1 QAM
  19. VITAMIN B 12 [Concomitant]
     Indication: ASTHENIA
     Route: 060
  20. ALPHA LIPOIC ACID [Concomitant]
     Indication: ANOSMIA
  21. ZINC [Concomitant]
     Indication: ANOSMIA
  22. ECHINACEA [Concomitant]
     Indication: IMMUNE SYSTEM DISORDER
     Dosage: 1 DAILY
  23. GINGKO BILOBA [Concomitant]
  24. FISH OIL OMEGA 3 [Concomitant]
     Dosage: 1000 MG 300 MG 1 CAP BID
  25. VITAMIN D3 [Concomitant]
     Indication: IMMUNE SYSTEM DISORDER
  26. COLON CLEANSE SENNA LAXATIVE [Concomitant]
     Dosage: 8.6 MG SENNOSIDES 1 QAM
  27. DOCUSATE SODIUM [Concomitant]
  28. DULERA [Concomitant]
     Indication: ASTHMA
     Dosage: 200 MCG 5 MCG 2 PUFF PRN
  29. COMBIVENT [Concomitant]
     Indication: ASTHMA
     Dosage: 14.7 G 2 PUFFS PRN
  30. PRAMIPAXOLE DIHYDROCHLORIDE [Concomitant]
     Indication: RESTLESS LEGS SYNDROME
     Dosage: 0.5 MG 1 PRN HS
  31. CYCLOBENZAPRINE [Concomitant]
     Indication: MUSCLE SPASMS
     Dosage: 10 MG 1 TAB PRN TID
  32. PROMETHAZINE [Concomitant]
     Indication: NAUSEA
     Dosage: 25 MG 1 TAB PRN Q6H
  33. OXBUTYNIN [Concomitant]
     Indication: BLADDER SPASM
     Dosage: 5 MG 1 PRN TID
  34. GABAPENTIN [Concomitant]
     Indication: PAIN
     Dosage: 600 MG 1 TAB PRN BID
  35. GABAPENTIN [Concomitant]
     Indication: MUSCLE SPASMS
     Dosage: 600 MG 1 TAB PRN BID

REACTIONS (23)
  - Infection [Unknown]
  - Nephrolithiasis [Unknown]
  - Cystitis [Unknown]
  - Ulcer [Unknown]
  - Gastroenteritis viral [Unknown]
  - Muscle spasms [Unknown]
  - Pain [Unknown]
  - Panic reaction [Unknown]
  - Asthma [Unknown]
  - Mental disorder [Unknown]
  - Anxiety [Unknown]
  - Fatigue [Unknown]
  - Menopausal symptoms [Unknown]
  - Back pain [Unknown]
  - Intervertebral disc degeneration [Unknown]
  - Attention deficit/hyperactivity disorder [Unknown]
  - Osteitis deformans [Unknown]
  - Pain [Unknown]
  - Arthralgia [Unknown]
  - Depression [Unknown]
  - Malaise [Unknown]
  - Drug dose omission [Unknown]
  - Off label use [Unknown]
